FAERS Safety Report 4966804-1 (Version None)
Quarter: 2006Q2

REPORT INFORMATION
  Report Type: 
  Country: None (occurrence: None)
  Receive Date: 20060407
  Receipt Date: 20051026
  Transmission Date: 20061013
  Serious: Yes (Disabling)
  Sender: FDA-Public Use
  Company Number: US-MERCK-0510USA09551

PATIENT
  Age: 48 Year
  Sex: Male

DRUGS (2)
  1. VIOXX [Suspect]
     Indication: ARTHRALGIA
     Route: 048
     Dates: start: 20020406
  2. VIOXX [Suspect]
     Indication: ACCIDENT AT WORK
     Route: 048
     Dates: start: 20020406

REACTIONS (2)
  - CARDIOVASCULAR DISORDER [None]
  - VISION BLURRED [None]
